FAERS Safety Report 5820848-6 (Version None)
Quarter: 2008Q3

REPORT INFORMATION
  Report Type: 
  Country: None (occurrence: None)
  Receive Date: 20080718
  Receipt Date: 20080718
  Transmission Date: 20090109
  Serious: Yes (Other)
  Sender: FDA-Public Use
  Company Number: None

PATIENT
  Age: 55 Year
  Sex: Female
  Weight: 55.3388 kg

DRUGS (1)
  1. ACTONEL [Suspect]
     Indication: OSTEOPOROSIS PROPHYLAXIS
     Dosage: 150MG ONCE A MONTH PO
     Route: 048
     Dates: start: 20080712

REACTIONS (3)
  - MYALGIA [None]
  - NAUSEA [None]
  - VOMITING [None]
